FAERS Safety Report 7912038-8 (Version None)
Quarter: 2011Q4

REPORT INFORMATION
  Report Type: 
  Country: None (occurrence: None)
  Receive Date: 20111114
  Receipt Date: 20111024
  Transmission Date: 20120403
  Serious: Yes (Other)
  Sender: FDA-Public Use
  Company Number: US-ASTRAZENECA-2011SE64374

PATIENT
  Age: 62 Year
  Sex: Female

DRUGS (3)
  1. ATACAND [Suspect]
     Route: 048
  2. PLAVIX [Concomitant]
  3. LIPITOR [Concomitant]

REACTIONS (4)
  - CEREBROVASCULAR ACCIDENT [None]
  - APHASIA [None]
  - ARTERIOSCLEROSIS [None]
  - DYSPHAGIA [None]
